FAERS Safety Report 6848630-1 (Version None)
Quarter: 2010Q3

REPORT INFORMATION
  Report Type: 
  Country: None (occurrence: None)
  Receive Date: 20100716
  Receipt Date: 20100712
  Transmission Date: 20110219
  Serious: Yes (Hospitalization)
  Sender: FDA-Public Use
  Company Number: DE-CEPHALON-2010003607

PATIENT
  Sex: Female
  Weight: 62 kg

DRUGS (3)
  1. VIGIL [Suspect]
     Indication: SOMNOLENCE
     Route: 048
     Dates: start: 20080401, end: 20080801
  2. CIPRALEX [Concomitant]
     Indication: DEPRESSION
     Dates: start: 20050101
  3. CIPRALEX [Concomitant]
     Indication: MENINGIOMA

REACTIONS (3)
  - BLADDER DISORDER [None]
  - CONSTIPATION [None]
  - DRUG EFFECT DECREASED [None]
